FAERS Safety Report 12880259 (Version 4)
Quarter: 2017Q3

REPORT INFORMATION
  Report Type: Spontaneous
  Country: US (occurrence: US)
  Receive Date: 20161025
  Receipt Date: 20170731
  Transmission Date: 20171127
  Serious: Yes (Life-Threatening, Congenital Anomaly, Other)
  Sender: FDA-Public Use
  Company Number: PHHY2015US133796

PATIENT
  Sex: Female

DRUGS (1)
  1. ZOFRAN [Suspect]
     Active Substance: ONDANSETRON HYDROCHLORIDE
     Indication: FOETAL EXPOSURE DURING PREGNANCY
     Dosage: MOTHER DOSE: 08 MG, Q8H
     Route: 064

REACTIONS (8)
  - Congenital renal disorder [Unknown]
  - Gastrooesophageal reflux disease [Unknown]
  - White blood cell count decreased [Unknown]
  - Foetal exposure during pregnancy [Unknown]
  - Dysmenorrhoea [Unknown]
  - Endometriosis [Unknown]
  - Ovarian cyst [Unknown]
  - Pollakiuria [Unknown]
